FAERS Safety Report 8837864 (Version 1)
Quarter: 2012Q4

REPORT INFORMATION
  Report Type: 
  Country: US (occurrence: US)
  Receive Date: 20121012
  Receipt Date: 20121012
  Transmission Date: 20130627
  Serious: Yes (Hospitalization)
  Sender: FDA-Public Use
  Company Number: US-BAYER-2012-103661

PATIENT
  Age: 43 Year
  Sex: Female

DRUGS (6)
  1. YAZ [Suspect]
     Indication: CONTRACEPTION
  2. OCELLA [Suspect]
  3. ZOLOFT [Concomitant]
     Indication: DEPRESSION
     Dosage: 100 mg, QD
     Dates: start: 20100818, end: 20110525
  4. BUSPAR [Concomitant]
     Indication: ANXIETY
     Dosage: 10 mg, QD
     Dates: start: 20100818, end: 20110606
  5. ASPIRIN [Concomitant]
     Dosage: 162 mg, QD
  6. ZOCOR [Concomitant]
     Dosage: 20 mg, QD

REACTIONS (1)
  - Ischaemic stroke [None]
